FAERS Safety Report 16169361 (Version 1)
Quarter: 2019Q2

REPORT INFORMATION
  Report Type: Spontaneous
  Country: US (occurrence: US)
  Receive Date: 20190408
  Receipt Date: 20190408
  Transmission Date: 20190711
  Serious: No
  Sender: FDA-Public Use
  Company Number: US-009507513-1904USA002681

PATIENT
  Age: 41 Year
  Sex: Female
  Weight: 155.56 kg

DRUGS (3)
  1. NEXPLANON [Suspect]
     Active Substance: ETONOGESTREL
     Dosage: 1 ROD EVERY 3 YEARS
     Route: 059
     Dates: start: 20190401
  2. NEXPLANON [Suspect]
     Active Substance: ETONOGESTREL
     Indication: CONTRACEPTION
     Dosage: 1 ROD EVERY 3 YEARS
     Route: 059
     Dates: start: 20190228, end: 20190401
  3. DYRENIUM [Concomitant]
     Active Substance: TRIAMTERENE
     Dosage: 50 MILLIGRAM

REACTIONS (4)
  - Device expulsion [Recovered/Resolved]
  - Implant site infection [Not Recovered/Not Resolved]
  - Implant site pain [Unknown]
  - Implant site dehiscence [Not Recovered/Not Resolved]

NARRATIVE: CASE EVENT DATE: 20190304
